FAERS Safety Report 21282843 (Version 2)
Quarter: 2024Q1

REPORT INFORMATION
  Report Type: Spontaneous
  Country: DE (occurrence: DE)
  Receive Date: 20220901
  Receipt Date: 20240110
  Transmission Date: 20240410
  Serious: Yes (Hospitalization)
  Sender: FDA-Public Use
  Company Number: DE-BRISTOL-MYERS SQUIBB COMPANY-2022-097229

PATIENT
  Age: 89 Year
  Sex: Male
  Weight: 60 kg

DRUGS (2)
  1. APIXABAN [Suspect]
     Active Substance: APIXABAN
     Indication: Atrial fibrillation
     Route: 048
  2. APIXABAN [Suspect]
     Active Substance: APIXABAN
     Route: 048

REACTIONS (2)
  - Dyspnoea [Unknown]
  - Prescribed overdose [Unknown]
